FAERS Safety Report 25178770 (Version 1)
Quarter: 2025Q2

REPORT INFORMATION
  Report Type: Spontaneous
  Country: GB (occurrence: GB)
  Receive Date: 20250409
  Receipt Date: 20250409
  Transmission Date: 20250717
  Serious: Yes (Other)
  Sender: MYLAN
  Company Number: GB-MHRA-TPP42732585C15434210YC1743695687146

PATIENT
  Age: 62 Year
  Sex: Male
  Weight: 94 kg

DRUGS (19)
  1. DOXYCYCLINE [Suspect]
     Active Substance: DOXYCYCLINE
     Indication: Ill-defined disorder
     Dosage: 100 MILLIGRAM, BID (FOR 21 DAYS)
     Dates: start: 20250310, end: 20250331
  2. NITROFURANTOIN [Concomitant]
     Active Substance: NITROFURANTOIN
     Indication: Ill-defined disorder
     Dosage: 1 DOSAGE FORM, BID (TAKE ONE CAPSULE TWICE A DAY FOR SEVEN DAYS)
     Dates: start: 20250326, end: 20250402
  3. EPIMAX EXCETRA [Concomitant]
     Indication: Ill-defined disorder
  4. HYDROCORTISONE [Concomitant]
     Active Substance: HYDROCORTISONE
     Indication: Ill-defined disorder
  5. AMLODIPINE [Concomitant]
     Active Substance: AMLODIPINE BESYLATE
     Indication: Ill-defined disorder
     Dosage: 1 DOSAGE FORM, QD (TAKE ONE TABLET EACH DAY)
     Dates: start: 20240925
  6. ATORVASTATIN [Concomitant]
     Active Substance: ATORVASTATIN
     Indication: Ill-defined disorder
     Dosage: 1 DOSAGE FORM, QD (TAKE ONE DAILY)
     Dates: start: 20240925
  7. BISOPROLOL [Concomitant]
     Active Substance: BISOPROLOL
     Indication: Ill-defined disorder
     Dosage: 1 DOSAGE FORM, AM (TAKE ONE TABLET IN THE MORNING)
     Dates: start: 20240925
  8. BUDESONIDE [Concomitant]
     Active Substance: BUDESONIDE
     Indication: Ill-defined disorder
     Dosage: 1 DOSAGE FORM, PM (USE ONE AT NIGHT FOR FLARES)
     Dates: start: 20240925
  9. CLOPIDOGREL [Concomitant]
     Active Substance: CLOPIDOGREL BISULFATE
     Indication: Myocardial infarction
     Dosage: 1 DOSAGE FORM, QD (TAKE ONE TABLET EACH DAY TO HELP PREVENT HEART ...  )
     Dates: start: 20240925
  10. GLICLAZIDE [Concomitant]
     Active Substance: GLICLAZIDE
     Indication: Diabetes mellitus
     Dosage: 2 DOSAGE FORM, BID (TAKE TWO TABS TWICE DAILY TO HELP CONTROL DIABETES)
     Dates: start: 20240925
  11. LANSOPRAZOLE [Concomitant]
     Active Substance: LANSOPRAZOLE
     Indication: Dyspepsia
     Dosage: 1 DOSAGE FORM, QD (TAKE ONE CAPSULE EACH DAY TO HELP PREVENT INDIG...)
     Dates: start: 20240925
  12. TOLTERODINE [Concomitant]
     Active Substance: TOLTERODINE
     Indication: Ill-defined disorder
     Dosage: 2 DOSAGE FORM, QD (TAKE 2 TABLETS ( 4MG) DAILY FOR BLADDER PROBLEM.)
     Dates: start: 20240925
  13. TOLTERODINE [Concomitant]
     Active Substance: TOLTERODINE
     Indication: Bladder disorder
  14. MESALAMINE [Concomitant]
     Active Substance: MESALAMINE
     Indication: Ill-defined disorder
     Dosage: 1 DOSAGE FORM, TID (TAKE ONE TABLET THREE TIMES A DAY)
     Dates: start: 20240925
  15. OLMESARTAN MEDOXOMIL [Concomitant]
     Active Substance: OLMESARTAN MEDOXOMIL
     Indication: Ill-defined disorder
     Dosage: 1 DOSAGE FORM, QD (TAKE ONE DAILY)
     Dates: start: 20240925
  16. SERTRALINE [Concomitant]
     Active Substance: SERTRALINE HYDROCHLORIDE
     Indication: Ill-defined disorder
     Dosage: 1 DOSAGE FORM, QD (TAKE ONE DAILY)
     Dates: start: 20240925
  17. TAMSULOSIN HYDROCHLORIDE [Concomitant]
     Active Substance: TAMSULOSIN HYDROCHLORIDE
     Indication: Hypertonic bladder
     Dosage: 1 DOSAGE FORM, QD (TAKE ONE CAPSULE DAILY TO HELP BLADDER SYMPTOMS)
     Dates: start: 20240925
  18. SITAGLIPTIN [Concomitant]
     Active Substance: SITAGLIPTIN
     Indication: Diabetes mellitus
     Dosage: 1 DOSAGE FORM, QD (TAKE ONE TABLET ONCE A DAY TO HELP CONTROL DIAB...)
     Dates: start: 20241125
  19. DAPAGLIFLOZIN [Concomitant]
     Active Substance: DAPAGLIFLOZIN
     Indication: Diabetes mellitus
     Dosage: 1 DOSAGE FORM, QD (TAKE ONE TABLET ONCE A DAY TO HELP CONTROL DIAB... )
     Dates: start: 20250310

REACTIONS (1)
  - Photosensitivity reaction [Recovering/Resolving]
